FAERS Safety Report 8087540-1 (Version None)
Quarter: 2012Q1

REPORT INFORMATION
  Report Type: 
  Country: None (occurrence: None)
  Receive Date: 20120128
  Receipt Date: 20110408
  Transmission Date: 20120608
  Serious: No
  Sender: FDA-Public Use
  Company Number: US-ABBOTT-11P-163-0717861-00

PATIENT
  Age: 20 Year
  Sex: Female

DRUGS (3)
  1. DERMA-SMOOTHE/FS [Concomitant]
     Indication: PSORIASIS
     Route: 061
  2. HUMIRA [Suspect]
     Indication: PSORIASIS
     Dates: start: 20110201
  3. CLOBEX [Concomitant]
     Indication: PSORIASIS
     Route: 061

REACTIONS (2)
  - PRURITUS [None]
  - RASH MACULAR [None]
